FAERS Safety Report 15125273 (Version 1)
Quarter: 2018Q3

REPORT INFORMATION
  Report Type: Spontaneous
  Country: CN (occurrence: CN)
  Receive Date: 20180710
  Receipt Date: 20180710
  Transmission Date: 20181010
  Serious: Yes (Hospitalization, Other)
  Sender: FDA-Public Use
  Company Number: CN-MYLANLABS-2018M1051161

PATIENT
  Age: 7 Month
  Sex: Female

DRUGS (1)
  1. VALPROIC ACID. [Suspect]
     Active Substance: VALPROIC ACID
     Indication: INFANTILE SPASMS
     Dosage: UNK

REACTIONS (3)
  - Seizure [Recovering/Resolving]
  - Pancytopenia [Recovered/Resolved]
  - Haemorrhage [Recovering/Resolving]
